FAERS Safety Report 18954074 (Version 2)
Quarter: 2021Q3

REPORT INFORMATION
  Report Type: Spontaneous
  Country: US (occurrence: US)
  Receive Date: 20210301
  Receipt Date: 20210825
  Transmission Date: 20211014
  Serious: Yes (Other)
  Sender: FDA-Public Use
  Company Number: US-GILEAD-2021-0517961

PATIENT
  Sex: Female
  Weight: 81.18 kg

DRUGS (37)
  1. FAMOTIDINE. [Concomitant]
     Active Substance: FAMOTIDINE
  2. CIPROFLOXACIN. [Concomitant]
     Active Substance: CIPROFLOXACIN
  3. PREDNISONE. [Concomitant]
     Active Substance: PREDNISONE
  4. ESOMEPRAZOLE. [Concomitant]
     Active Substance: ESOMEPRAZOLE MAGNESIUM
  5. STRIBILD [Suspect]
     Active Substance: COBICISTAT\ELVITEGRAVIR\EMTRICITABINE\TENOFOVIR DISOPROXIL FUMARATE
     Dosage: UNK
     Route: 048
     Dates: start: 2012, end: 2017
  6. OLOPATADINE. [Concomitant]
     Active Substance: OLOPATADINE
  7. FLUTICASONE. [Concomitant]
     Active Substance: FLUTICASONE
  8. RIFAMPIN. [Concomitant]
     Active Substance: RIFAMPIN
  9. STRIBILD [Suspect]
     Active Substance: COBICISTAT\ELVITEGRAVIR\EMTRICITABINE\TENOFOVIR DISOPROXIL FUMARATE
     Indication: HIV INFECTION
     Dosage: UNK
     Route: 048
     Dates: start: 2014
  10. GENVOYA [Concomitant]
     Active Substance: COBICISTAT\ELVITEGRAVIR\EMTRICITABINE\TENOFOVIR ALAFENAMIDE FUMARATE
  11. ASPIRIN [ACETYLSALICYLIC ACID] [Concomitant]
     Active Substance: ASPIRIN
  12. FOLIC ACID. [Concomitant]
     Active Substance: FOLIC ACID
  13. VITAMIN D3 [Concomitant]
     Active Substance: CHOLECALCIFEROL
  14. CEFDINIR. [Concomitant]
     Active Substance: CEFDINIR
  15. CYCLOBENZAPRINE. [Concomitant]
     Active Substance: CYCLOBENZAPRINE
  16. MECLIZINE HCL [Concomitant]
     Active Substance: MECLIZINE HYDROCHLORIDE
  17. LOSARTAN. [Concomitant]
     Active Substance: LOSARTAN
  18. AZITHROMYCIN ANHYDROUS. [Concomitant]
     Active Substance: AZITHROMYCIN ANHYDROUS
  19. CETIRIZINE [Concomitant]
     Active Substance: CETIRIZINE HYDROCHLORIDE
  20. GABAPENTIN. [Concomitant]
     Active Substance: GABAPENTIN
  21. LIDOCAINE. [Concomitant]
     Active Substance: LIDOCAINE
  22. LANSOPRAZOLE. [Concomitant]
     Active Substance: LANSOPRAZOLE
  23. HYDROCHLOROTHIAZIDE. [Concomitant]
     Active Substance: HYDROCHLOROTHIAZIDE
  24. VITAMIN B12 [Concomitant]
     Active Substance: CYANOCOBALAMIN
  25. ZOLPIDEM [Concomitant]
     Active Substance: ZOLPIDEM TARTRATE
  26. METRONIDAZOLE. [Concomitant]
     Active Substance: METRONIDAZOLE
  27. LYRICA [Concomitant]
     Active Substance: PREGABALIN
  28. PREMARIN [Concomitant]
     Active Substance: ESTROGENS, CONJUGATED
  29. DULOXETINE. [Concomitant]
     Active Substance: DULOXETINE
  30. HYDROXYCHLOROQUINE [Concomitant]
     Active Substance: HYDROXYCHLOROQUINE
  31. SIMVASTATIN. [Concomitant]
     Active Substance: SIMVASTATIN
  32. FLUOCINONIDE. [Concomitant]
     Active Substance: FLUOCINONIDE
  33. VITAMIN D2 [Concomitant]
     Active Substance: ERGOCALCIFEROL
  34. AMITRIPTYLINE [Concomitant]
     Active Substance: AMITRIPTYLINE
  35. PROMETHAZINE [Concomitant]
     Active Substance: PROMETHAZINE HYDROCHLORIDE
  36. MEDROL [Concomitant]
     Active Substance: METHYLPREDNISOLONE
  37. TIZANIDINE. [Concomitant]
     Active Substance: TIZANIDINE

REACTIONS (11)
  - Chronic kidney disease [Unknown]
  - Emotional distress [Not Recovered/Not Resolved]
  - Osteoporosis [Not Recovered/Not Resolved]
  - Anhedonia [Not Recovered/Not Resolved]
  - Intervertebral disc degeneration [Not Recovered/Not Resolved]
  - Hypertension [Not Recovered/Not Resolved]
  - End stage renal disease [Not Recovered/Not Resolved]
  - Pain [Not Recovered/Not Resolved]
  - Restlessness [Unknown]
  - Anxiety [Not Recovered/Not Resolved]
  - Osteoarthritis [Not Recovered/Not Resolved]

NARRATIVE: CASE EVENT DATE: 2015
